FAERS Safety Report 18303981 (Version 2)
Quarter: 2020Q4

REPORT INFORMATION
  Report Type: Spontaneous
  Country: US (occurrence: US)
  Receive Date: 20200924
  Receipt Date: 20201001
  Transmission Date: 20210113
  Serious: Yes (Life-Threatening, Hospitalization)
  Sender: FDA-Public Use
  Company Number: US-TEVA-2020-US-1829798

PATIENT
  Age: 5 Decade
  Sex: Female

DRUGS (4)
  1. HYDROCORTISONE. [Suspect]
     Active Substance: HYDROCORTISONE
     Dosage: 10 MILLIGRAM DAILY; IN THE AFTERNOON
     Route: 065
  2. ANAKINRA [Suspect]
     Active Substance: ANAKINRA
     Indication: JUVENILE IDIOPATHIC ARTHRITIS
     Dosage: 100 MILLIGRAM DAILY;
     Route: 058
  3. HYDROCORTISONE. [Suspect]
     Active Substance: HYDROCORTISONE
     Indication: JUVENILE IDIOPATHIC ARTHRITIS
     Dosage: 20 MILLIGRAM DAILY; IN THE MORNING
     Route: 065
  4. HYDROXYCHLOROQUINE [Suspect]
     Active Substance: HYDROXYCHLOROQUINE
     Indication: JUVENILE IDIOPATHIC ARTHRITIS
     Dosage: 400 MILLIGRAM DAILY; INITIAL DOSES WERE UNSPECIFIED AND IT WAS WITHHELD FROM MID 20^S TO 40YEARS OF
     Route: 065

REACTIONS (4)
  - Diaphragm muscle weakness [Recovering/Resolving]
  - Toxicity to various agents [Recovering/Resolving]
  - Myopathy toxic [Recovering/Resolving]
  - Pneumothorax [Recovering/Resolving]
